FAERS Safety Report 10900055 (Version 1)
Quarter: 2015Q1

REPORT INFORMATION
  Report Type: Spontaneous
  Country: US (occurrence: US)
  Receive Date: 20150310
  Receipt Date: 20150310
  Transmission Date: 20150721
  Serious: No
  Sender: FDA-Public Use
  Company Number: US-TEVA-541131USA

PATIENT
  Age: 55 Year
  Sex: Female

DRUGS (1)
  1. CAPECITABINE. [Suspect]
     Active Substance: CAPECITABINE
     Indication: CHEMOTHERAPY
     Dosage: 2000 MILLIGRAM DAILY; MONDAY THROUGH FRIDAY-CONTINUOUS THERAPY
     Route: 048

REACTIONS (4)
  - Joint stiffness [Unknown]
  - Paraesthesia [Unknown]
  - Hot flush [Unknown]
  - Abdominal pain upper [Unknown]
